FAERS Safety Report 7922659-4 (Version None)
Quarter: 2011Q4

REPORT INFORMATION
  Report Type: 
  Country: None (occurrence: None)
  Receive Date: 20111117
  Receipt Date: 20110223
  Transmission Date: 20120403
  Serious: No
  Sender: FDA-Public Use
  Company Number: US-ALLERGAN-1102623US

PATIENT
  Age: 90 Year
  Sex: Male

DRUGS (2)
  1. COMBIGAN [Suspect]
     Indication: GLAUCOMA
     Dosage: 1 GTT, BID
     Route: 047
  2. TRAVATAN [Concomitant]
     Indication: PRODUCT USED FOR UNKNOWN INDICATION
     Dosage: QHS
     Route: 047

REACTIONS (2)
  - MUSCULOSKELETAL STIFFNESS [None]
  - AMNESIA [None]
